FAERS Safety Report 6979397-4 (Version None)
Quarter: 2010Q3

REPORT INFORMATION
  Report Type: 
  Country: None (occurrence: None)
  Receive Date: 20100910
  Receipt Date: 20100910
  Transmission Date: 20110219
  Serious: Yes (Other)
  Sender: FDA-Public Use
  Company Number: None

PATIENT
  Age: 65 Year
  Sex: Female
  Weight: 94.3482 kg

DRUGS (6)
  1. EFFIENT [Suspect]
     Indication: ANGIOPLASTY
     Dosage: 10MG DAILY ORAL
     Route: 048
     Dates: start: 20100827
  2. EFFIENT [Suspect]
     Indication: STENT PLACEMENT
     Dosage: 10MG DAILY ORAL
     Route: 048
     Dates: start: 20100827
  3. BENICAR HCT [Concomitant]
  4. NORVASC [Concomitant]
  5. TRIAMTERENE AND HYDROCHLOROTHIAZIDE [Concomitant]
  6. NEXIUM [Concomitant]

REACTIONS (3)
  - ABDOMINAL DISCOMFORT [None]
  - ABDOMINAL PAIN UPPER [None]
  - NAUSEA [None]
